FAERS Safety Report 8758719 (Version 1)
Quarter: 2012Q4

REPORT INFORMATION
  Report Type: 
  Country: AU (occurrence: AU)
  Receive Date: 20120829
  Receipt Date: 20120829
  Transmission Date: 20130627
  Serious: Yes (Hospitalization, Other)
  Sender: FDA-Public Use
  Company Number: PHHY2012AU074362

PATIENT
  Age: 87 Year
  Sex: Male

DRUGS (1)
  1. ACLASTA [Suspect]
     Route: 042
     Dates: start: 20090601

REACTIONS (2)
  - Sciatica [Recovered/Resolved with Sequelae]
  - Pain [Recovered/Resolved with Sequelae]
